FAERS Safety Report 7944188-4 (Version None)
Quarter: 2011Q4

REPORT INFORMATION
  Report Type: 
  Country: None (occurrence: None)
  Receive Date: 20111129
  Receipt Date: 20111122
  Transmission Date: 20120403
  Serious: Yes (Hospitalization)
  Sender: FDA-Public Use
  Company Number: US-BIOGENIDEC-2011BI043262

PATIENT
  Age: 61 Year
  Sex: Female

DRUGS (2)
  1. TYSABRI [Suspect]
     Indication: MULTIPLE SCLEROSIS
     Route: 042
     Dates: start: 20100802
  2. CYMBALTA [Concomitant]
     Indication: SUICIDE ATTEMPT
     Dates: start: 20050101

REACTIONS (9)
  - URINARY TRACT INFECTION [None]
  - STAPHYLOCOCCAL INFECTION [None]
  - CARDIAC FAILURE [None]
  - SUICIDAL IDEATION [None]
  - RENAL FAILURE ACUTE [None]
  - PNEUMONIA [None]
  - PNEUMONIA ASPIRATION [None]
  - LOSS OF CONSCIOUSNESS [None]
  - BLOOD PRESSURE FLUCTUATION [None]
